FAERS Safety Report 7234510-9 (Version None)
Quarter: 2011Q1

REPORT INFORMATION
  Report Type: 
  Country: None (occurrence: None)
  Receive Date: 20110119
  Receipt Date: 20110110
  Transmission Date: 20110831
  Serious: Yes (Other)
  Sender: FDA-Public Use
  Company Number: US-MERCK-1008USA00270

PATIENT
  Age: 78 Year
  Sex: Female

DRUGS (2)
  1. FOSAMAX PLUS D [Suspect]
     Indication: OSTEOPOROSIS
     Route: 048
     Dates: start: 20040101, end: 20090601
  2. DIOVAN [Concomitant]
     Indication: CORONARY ARTERY DISEASE
     Route: 065
     Dates: start: 20020101, end: 20100101

REACTIONS (30)
  - ORAL INFECTION [None]
  - TOOTHACHE [None]
  - DIASTOLIC DYSFUNCTION [None]
  - AORTIC VALVE DISEASE MIXED [None]
  - ABSCESS [None]
  - PULMONARY HYPERTENSION [None]
  - IMPAIRED HEALING [None]
  - BENIGN NEOPLASM [None]
  - HYPERPARATHYROIDISM [None]
  - TOOTH DISCOLOURATION [None]
  - CARDIAC FAILURE CONGESTIVE [None]
  - NEPHROLITHIASIS [None]
  - AORTIC ANEURYSM [None]
  - ATRIAL TACHYCARDIA [None]
  - VOMITING [None]
  - EXOSTOSIS [None]
  - CONVULSION [None]
  - NEPHROCALCINOSIS [None]
  - NAUSEA [None]
  - HYPERCALCAEMIA [None]
  - BONE DENSITY DECREASED [None]
  - OSTEONECROSIS OF JAW [None]
  - PARATHYROID TUMOUR BENIGN [None]
  - TOOTH FRACTURE [None]
  - DIVERTICULUM INTESTINAL [None]
  - BONE METABOLISM DISORDER [None]
  - ADVERSE DRUG REACTION [None]
  - DENTAL CARIES [None]
  - CARDIAC DISORDER [None]
  - HIATUS HERNIA [None]
